FAERS Safety Report 15039933 (Version 1)
Quarter: 2018Q2

REPORT INFORMATION
  Report Type: Spontaneous
  Country: US (occurrence: US)
  Receive Date: 20180620
  Receipt Date: 20180620
  Transmission Date: 20180711
  Serious: Yes (Hospitalization, Other)
  Sender: FDA-Public Use
  Company Number: US-JAZZ-2011-031

PATIENT
  Age: 49 Year
  Sex: Female

DRUGS (9)
  1. CLONIDINE. [Suspect]
     Active Substance: CLONIDINE
     Indication: PAIN
  2. DILAUDID [Suspect]
     Active Substance: HYDROMORPHONE HYDROCHLORIDE
     Indication: PANCREATITIS
     Dosage: UNK MG, ONCE/HOUR
     Route: 037
     Dates: end: 201101
  3. CLONIDINE. [Suspect]
     Active Substance: CLONIDINE
     Indication: PANCREATITIS
     Dosage: UNK MCG, ONCE/HOUR
     Route: 037
     Dates: end: 201101
  4. FENTANYL. [Suspect]
     Active Substance: FENTANYL
     Indication: PANCREATITIS
     Dosage: UNK MCG, ONCE/HOUR
     Route: 037
  5. PRIALT [Suspect]
     Active Substance: ZICONOTIDE ACETATE
     Indication: PANCREATITIS
     Dosage: UNK MCG, ONCE/HOUR
     Route: 037
     Dates: end: 201101
  6. BUPIVACAINE. [Suspect]
     Active Substance: BUPIVACAINE
     Indication: PAIN
     Route: 037
  7. PRIALT [Suspect]
     Active Substance: ZICONOTIDE ACETATE
     Indication: PAIN
  8. DILAUDID [Suspect]
     Active Substance: HYDROMORPHONE HYDROCHLORIDE
     Indication: PAIN
  9. FENTANYL. [Suspect]
     Active Substance: FENTANYL
     Indication: PAIN

REACTIONS (9)
  - Overdose [Recovered/Resolved]
  - Muscle spasms [Unknown]
  - Brain injury [Not Recovered/Not Resolved]
  - Memory impairment [Unknown]
  - Weight increased [Recovering/Resolving]
  - Infection [Recovered/Resolved]
  - Electrocardiogram abnormal [Unknown]
  - Drug withdrawal syndrome [Unknown]
  - Coma [Recovered/Resolved]

NARRATIVE: CASE EVENT DATE: 201012
